FAERS Safety Report 6993876-5 (Version None)
Quarter: 2010Q3

REPORT INFORMATION
  Report Type: 
  Country: None (occurrence: None)
  Receive Date: 20100917
  Receipt Date: 20100301
  Transmission Date: 20110219
  Serious: Yes (Hospitalization)
  Sender: FDA-Public Use
  Company Number: US-ASTRAZENECA-2010SE08594

PATIENT
  Age: 49 Year
  Sex: Male

DRUGS (11)
  1. QUETIAPINE [Suspect]
     Indication: DEPRESSION
     Route: 048
  2. QUETIAPINE [Suspect]
     Indication: DELUSIONAL DISORDER, PERSECUTORY TYPE
     Route: 048
  3. QUETIAPINE [Suspect]
     Dosage: INITIAL DOSE WAS REDUCED BY 50 MG DAILY, ON ADMISSION  DOSE AS USED WAS 50 MG AT BEDTIME
     Route: 048
  4. QUETIAPINE [Suspect]
     Dosage: INITIAL DOSE WAS REDUCED BY 50 MG DAILY, ON ADMISSION  DOSE AS USED WAS 50 MG AT BEDTIME
     Route: 048
  5. CLOZAPINE [Suspect]
  6. CLOZAPINE [Suspect]
  7. CLOZAPINE [Suspect]
     Dosage: DOSE WAS CONTINUOUSLY INCREASED WITH 25 MG DAILY, ON ADMISSION DOSE AS USED WAS 150 MG TWICE DAILY
  8. MIRTAZAPINE [Concomitant]
     Indication: DEPRESSION
  9. MIRTAZAPINE [Concomitant]
     Indication: DELUSIONAL DISORDER, PERSECUTORY TYPE
  10. LEVOTHYROXINE [Concomitant]
     Indication: THYROID HORMONE REPLACEMENT THERAPY
  11. DIVALPROEX SODIUM [Concomitant]

REACTIONS (1)
  - NEUROLEPTIC MALIGNANT SYNDROME [None]
